FAERS Safety Report 10377612 (Version 1)
Quarter: 2014Q1

REPORT INFORMATION
  Report Type: Spontaneous
  Country: US (occurrence: None)
  Receive Date: 20140306
  Receipt Date: 20140306
  Transmission Date: 20141002
  Serious: Yes (Hospitalization)
  Sender: FDA-Public Use
  Company Number: 163-21880-13033753

PATIENT
  Age: 63 Year
  Sex: Female

DRUGS (10)
  1. REVLIMID (LENALIDOMIDE) (25 MILLIGRAM, CAPSULES) [Suspect]
     Indication: PLASMA CELL MYELOMA
     Route: 048
     Dates: start: 201104
  2. COUMADIN (WARFARIN SODIUM) (TABLETS) [Concomitant]
  3. CYMBALTA [Concomitant]
  4. DEXAMETHASONE (DEXAMETHASONE) (UNKNOWN) [Concomitant]
  5. GABAPENTIN (GABAPENTIN) (UNKNOWN) (GABAPENTIN) [Concomitant]
  6. HYDROCHLOROTHIAZIDE (HYDROCHLOROTHIAZIDE) (UNKNOWN) [Concomitant]
  7. HYDROMORPHONE HCL (HYDROMORPHONE HYDROCHLORIDE) (UNKNOWN) [Concomitant]
  8. JANTOVEN (WARFARIN SODIUM) (TABLETS) [Concomitant]
  9. PAXIL (PAROXETINE HYDROCHLORIDE) (TABLETS) [Concomitant]
  10. POTASSIUM (POTASSIUM) (TABLETS) [Concomitant]

REACTIONS (3)
  - Cerebrovascular accident [None]
  - Myocardial infarction [None]
  - Confusional state [None]
